FAERS Safety Report 4974401-7 (Version None)
Quarter: 2006Q2

REPORT INFORMATION
  Report Type: 
  Country: None (occurrence: None)
  Receive Date: 20060410
  Receipt Date: 20060330
  Transmission Date: 20061013
  Serious: Yes (Death, Hospitalization)
  Sender: FDA-Public Use
  Company Number: SU-2005-004418

PATIENT
  Age: 61 Year
  Sex: Female
  Weight: 83.9154 kg

DRUGS (4)
  1. BENICAR HCT [Suspect]
     Indication: HYPERTENSION
     Dosage: 40.125 MG QD PO
     Route: 048
     Dates: start: 20040401, end: 20051109
  2. TOPROL-XL [Concomitant]
  3. UNSPECIFIED OTC MEDICATIONS [Concomitant]
  4. UNSPECIFIED VITAMINS [Concomitant]

REACTIONS (16)
  - BLOOD ALBUMIN DECREASED [None]
  - CHOLELITHIASIS [None]
  - DRUG SCREEN POSITIVE [None]
  - HEPATIC ENCEPHALOPATHY [None]
  - HEPATIC FAILURE [None]
  - HEPATIC STEATOSIS [None]
  - HEPATITIS ACUTE [None]
  - HEPATOTOXICITY [None]
  - HYPOKALAEMIA [None]
  - INTERNATIONAL NORMALISED RATIO INCREASED [None]
  - PROTEIN TOTAL INCREASED [None]
  - REFUSAL OF TREATMENT BY PATIENT [None]
  - RESPIRATORY RATE INCREASED [None]
  - SEPSIS [None]
  - URINARY TRACT INFECTION [None]
  - VIRAL INFECTION [None]
